FAERS Safety Report 5712943-7 (Version None)
Quarter: 2008Q2

REPORT INFORMATION
  Report Type: 
  Country: None (occurrence: None)
  Receive Date: 20080422
  Receipt Date: 20080416
  Transmission Date: 20081010
  Serious: Yes (Life-Threatening, Hospitalization)
  Sender: FDA-Public Use
  Company Number: FR-WYE-G01412708

PATIENT
  Sex: Female

DRUGS (6)
  1. TAZOCILLINE [Suspect]
     Indication: SEPTIC SHOCK
     Dosage: UNKNOWN
     Route: 042
     Dates: start: 20070925
  2. VANCOMYCIN [Suspect]
     Indication: SEPTIC SHOCK
     Dosage: UNKNOWN
     Dates: start: 20070925, end: 20071001
  3. TRIFLUCAN [Suspect]
     Indication: SEPTIC SHOCK
     Dosage: 800 MG TOTAL DAILY
     Route: 042
     Dates: start: 20070925, end: 20070926
  4. TRIFLUCAN [Suspect]
     Dosage: 400 MG TOTAL DAILY
     Route: 042
     Dates: start: 20070927, end: 20070927
  5. TRIFLUCAN [Suspect]
     Route: 042
     Dates: start: 20070928, end: 20070928
  6. TRIFLUCAN [Suspect]
     Route: 042
     Dates: start: 20070930, end: 20070930

REACTIONS (3)
  - ENCEPHALOPATHY [None]
  - MYOCLONUS [None]
  - OVERDOSE [None]
